APPROVED DRUG PRODUCT: METOPROLOL SUCCINATE
Active Ingredient: METOPROLOL SUCCINATE
Strength: EQ 25MG TARTRATE
Dosage Form/Route: TABLET, EXTENDED RELEASE;ORAL
Application: A202033 | Product #001 | TE Code: AB
Applicant: MYLAN PHARMACEUTICALS INC
Approved: Dec 15, 2011 | RLD: No | RS: No | Type: RX